FAERS Safety Report 6015725-4 (Version None)
Quarter: 2008Q4

REPORT INFORMATION
  Report Type: 
  Country: None (occurrence: None)
  Receive Date: 20081222
  Receipt Date: 20081211
  Transmission Date: 20090506
  Serious: Yes (Other)
  Sender: FDA-Public Use
  Company Number: CH-WYE-H07237108

PATIENT
  Age: 36 Year
  Sex: Female

DRUGS (3)
  1. PANTOZOL [Suspect]
     Indication: GASTROOESOPHAGEAL REFLUX DISEASE
     Route: 048
     Dates: start: 20051224, end: 20060107
  2. DAFALGAN [Concomitant]
     Indication: PAIN
     Dosage: OCCASIONAL IRREGULAR USE
  3. RELPAX [Suspect]
     Indication: MIGRAINE
     Dosage: 40 MG EVERY 1 TOT
     Route: 048
     Dates: start: 20051230, end: 20051230

REACTIONS (2)
  - ABORTION MISSED [None]
  - DRUG EXPOSURE DURING PREGNANCY [None]
